FAERS Safety Report 23837564 (Version 1)
Quarter: 2024Q2

REPORT INFORMATION
  Report Type: Spontaneous
  Country: FR (occurrence: FR)
  Receive Date: 20240509
  Receipt Date: 20240509
  Transmission Date: 20240716
  Serious: Yes (Other)
  Sender: FDA-Public Use
  Company Number: FR-RIGEL PHARMACEUTICALS, INC.-2024FOS000555

PATIENT
  Age: 82 Year
  Sex: Male
  Weight: 57 kg

DRUGS (2)
  1. FOSTAMATINIB DISODIUM [Suspect]
     Active Substance: FOSTAMATINIB DISODIUM
     Indication: Immune thrombocytopenia
     Dosage: 300 MILLIGRAM, QD
     Route: 048
     Dates: start: 20231205, end: 20240327
  2. FOSTAMATINIB DISODIUM [Suspect]
     Active Substance: FOSTAMATINIB DISODIUM
     Dosage: 200 MILLIGRAM, QD
     Route: 048
     Dates: start: 20231120, end: 20231205

REACTIONS (1)
  - Hepatic cytolysis [Recovered/Resolved]

NARRATIVE: CASE EVENT DATE: 20240101
